FAERS Safety Report 15442353 (Version 13)
Quarter: 2019Q3

REPORT INFORMATION
  Report Type: Report from Study
  Country: CO (occurrence: CO)
  Receive Date: 20180928
  Receipt Date: 20190909
  Transmission Date: 20191004
  Serious: Yes (Hospitalization, Other)
  Sender: FDA-Public Use
  Company Number: CO-SA-2018SA266227

PATIENT
  Age: 49 Year
  Sex: Male

DRUGS (1)
  1. ALEMTUZUMAB [Suspect]
     Active Substance: ALEMTUZUMAB
     Indication: MULTIPLE SCLEROSIS
     Dosage: UNK UNK, QD
     Route: 041
     Dates: start: 20180903, end: 20180907

REACTIONS (15)
  - Monoparesis [Recovered/Resolved]
  - Crystal urine present [Recovered/Resolved]
  - Red blood cells urine positive [Recovered/Resolved]
  - Speech disorder [Unknown]
  - Pyrexia [Recovered/Resolved]
  - Nitrite urine present [Recovered/Resolved]
  - Blood creatinine decreased [Not Recovered/Not Resolved]
  - Urinary tract infection bacterial [Unknown]
  - White blood cells urine [Not Recovered/Not Resolved]
  - Protein urine [Recovered/Resolved]
  - Hypercalciuria [Recovered/Resolved]
  - Gait disturbance [Recovered/Resolved]
  - Asthenia [Recovered/Resolved]
  - Lymphocyte count decreased [Not Recovered/Not Resolved]
  - Bacteriuria [Not Recovered/Not Resolved]

NARRATIVE: CASE EVENT DATE: 20180907
